FAERS Safety Report 19155009 (Version 3)
Quarter: 2021Q2

REPORT INFORMATION
  Report Type: Spontaneous
  Country: IT (occurrence: IT)
  Receive Date: 20210419
  Receipt Date: 20210517
  Transmission Date: 20210717
  Serious: Yes (Death, Other)
  Sender: FDA-Public Use
  Company Number: IT-PFIZER INC-2021408936

PATIENT
  Age: 73 Year
  Sex: Male

DRUGS (21)
  1. ALENDRONATE SODIUM. [Concomitant]
     Active Substance: ALENDRONATE SODIUM
  2. ALENDRONATE SODIUM. [Concomitant]
     Active Substance: ALENDRONATE SODIUM
  3. RANEXA [Concomitant]
     Active Substance: RANOLAZINE
  4. BACTRIM [Concomitant]
     Active Substance: SULFAMETHOXAZOLE\TRIMETHOPRIM
  5. DIBASE [Concomitant]
     Active Substance: CHOLECALCIFEROL
     Dosage: UNK
  6. RANEXA [Concomitant]
     Active Substance: RANOLAZINE
     Dosage: UNK
  7. ROCALTROL [Concomitant]
     Active Substance: CALCITRIOL
     Dosage: UNK
  8. LASIX [Concomitant]
     Active Substance: FUROSEMIDE
     Dosage: VIALS
  9. MEDROL [Suspect]
     Active Substance: METHYLPREDNISOLONE
     Indication: VASCULITIS
     Dosage: 24 MG, 1X/DAY
     Route: 048
  10. ROSUVASTATIN CALCIUM. [Concomitant]
     Active Substance: ROSUVASTATIN CALCIUM
     Dosage: UNK
  11. PANTOPRAZOLE [Concomitant]
     Active Substance: PANTOPRAZOLE
     Dosage: UNK
  12. ROCALTROL [Concomitant]
     Active Substance: CALCITRIOL
  13. TRUXIMA [Suspect]
     Active Substance: RITUXIMAB-ABBS
     Indication: MICROSCOPIC POLYANGIITIS
     Dosage: 1000 MG, CYCLIC
     Route: 042
     Dates: start: 20210120, end: 20210203
  14. BACTRIM [Concomitant]
     Active Substance: SULFAMETHOXAZOLE\TRIMETHOPRIM
     Dosage: UNK
  15. BISOPROLOL FUMARATE. [Concomitant]
     Active Substance: BISOPROLOL FUMARATE
     Dosage: UNK
  16. ROSUVASTATIN CALCIUM. [Concomitant]
     Active Substance: ROSUVASTATIN CALCIUM
  17. DIBASE [Concomitant]
     Active Substance: CHOLECALCIFEROL
  18. PANTOPRAZOLE [Concomitant]
     Active Substance: PANTOPRAZOLE
  19. SINTROM [Concomitant]
     Active Substance: ACENOCOUMAROL
     Dosage: UNK
  20. BISOPROLOL FUMARATE. [Concomitant]
     Active Substance: BISOPROLOL FUMARATE
  21. SINTROM [Concomitant]
     Active Substance: ACENOCOUMAROL

REACTIONS (6)
  - Pneumonitis [Fatal]
  - Cardiac failure [Fatal]
  - Injury [Unknown]
  - Soft tissue infection [Fatal]
  - Sepsis [Fatal]
  - Fall [Unknown]

NARRATIVE: CASE EVENT DATE: 20210310
